FAERS Safety Report 6086065-2 (Version None)
Quarter: 2009Q1

REPORT INFORMATION
  Report Type: 
  Country: None (occurrence: None)
  Receive Date: 20090217
  Receipt Date: 20090217
  Transmission Date: 20090719
  Serious: No
  Sender: FDA-Public Use
  Company Number: None

PATIENT
  Sex: Female
  Weight: 55.3 kg

DRUGS (1)
  1. LABETALOL HCL [Suspect]
     Dosage: 400MG TID
     Dates: start: 20090130, end: 20090209

REACTIONS (1)
  - ASPARTATE AMINOTRANSFERASE ABNORMAL [None]
